FAERS Safety Report 8757736 (Version 3)
Quarter: 2012Q4

REPORT INFORMATION
  Report Type: 
  Country: JP (occurrence: JP)
  Receive Date: 20120828
  Receipt Date: 20121222
  Transmission Date: 20130627
  Serious: Yes (Hospitalization)
  Sender: FDA-Public Use
  Company Number: JP-009507513-2012SP029814

PATIENT
  Age: 65 Year
  Sex: Male
  Weight: 63 kg

DRUGS (16)
  1. PEGINTRON [Suspect]
     Indication: CHRONIC HEPATITIS C
     Dosage: 1.27 Microgram per kilogram per week
     Route: 058
     Dates: start: 20120315, end: 20120321
  2. PEGINTRON [Suspect]
     Dosage: 0.8 Microgram per kilogram per week
     Route: 058
     Dates: start: 20120322, end: 20120418
  3. PEGINTRON [Suspect]
     Dosage: 0.95 Microgram per kilogram per week
     Route: 058
     Dates: start: 20120419, end: 20120501
  4. PEGINTRON [Suspect]
     Dosage: 1.1 microgram per kilogram per week
     Route: 058
     Dates: start: 20120502, end: 20120509
  5. PEGINTRON [Suspect]
     Dosage: 1.41 Microgram per kilogram per week
     Route: 058
     Dates: start: 20120510
  6. PEGINTRON [Suspect]
     Dosage: 1.5 microgram per kilogram per week.
     Route: 058
  7. REBETOL [Suspect]
     Indication: CHRONIC HEPATITIS C
     Dosage: 800 mg, QD
     Route: 048
     Dates: start: 20120315, end: 20120323
  8. REBETOL [Suspect]
     Dosage: 600 mg, QD
     Route: 048
     Dates: start: 20120324, end: 20120325
  9. REBETOL [Suspect]
     Dosage: 200 mg, QD
     Route: 048
     Dates: start: 20120326, end: 20120627
  10. REBETOL [Suspect]
     Dosage: 400 mg, qd
     Route: 048
     Dates: start: 20120628, end: 20120808
  11. REBETOL [Suspect]
     Dosage: 600 mg, qd
     Route: 048
     Dates: start: 20120809
  12. TELAVIC [Suspect]
     Indication: CHRONIC HEPATITIS C
     Dosage: 2250 mg, qd
     Route: 048
     Dates: start: 20120315, end: 20120516
  13. URSO [Concomitant]
     Indication: CHRONIC HEPATITIS C
     Dosage: 900 mg, QD
     Route: 048
     Dates: start: 20110308, end: 20120314
  14. CALONAL [Concomitant]
     Indication: PROPHYLAXIS
     Dosage: 600 mg, QD
     Route: 048
     Dates: start: 20120315
  15. CALONAL [Concomitant]
     Dosage: 400 mg, qd
     Route: 048
  16. TAKEPRON [Concomitant]
     Indication: PROPHYLAXIS
     Dosage: 30 mg, qd
     Route: 048

REACTIONS (1)
  - Erythema multiforme [Recovered/Resolved]
